FAERS Safety Report 23477878 (Version 1)
Quarter: 2024Q1

REPORT INFORMATION
  Report Type: Report from Study
  Country: US (occurrence: US)
  Receive Date: 20240204
  Receipt Date: 20240204
  Transmission Date: 20240410
  Serious: No
  Sender: FDA-Public Use
  Company Number: US-EXELIXIS-CABO-23067591

PATIENT
  Age: 65 Year
  Sex: Male

DRUGS (2)
  1. CABOMETYX [Suspect]
     Active Substance: CABOZANTINIB S-MALATE
     Indication: Metastases to kidney
     Dosage: 40 MG, QD
     Route: 048
     Dates: start: 202308
  2. CABOMETYX [Suspect]
     Active Substance: CABOZANTINIB S-MALATE
     Indication: Metastases to pelvis
     Dosage: 20 MG, QD
     Route: 048

REACTIONS (8)
  - Burning sensation [Unknown]
  - Contusion [Unknown]
  - Skin exfoliation [Unknown]
  - Pain in extremity [Unknown]
  - Dysgeusia [Unknown]
  - Diarrhoea [Unknown]
  - Constipation [Unknown]
  - Off label use [Unknown]

NARRATIVE: CASE EVENT DATE: 20230801
